FAERS Safety Report 14774281 (Version 7)
Quarter: 2019Q1

REPORT INFORMATION
  Report Type: Spontaneous
  Country: VE (occurrence: VE)
  Receive Date: 20180418
  Receipt Date: 20190309
  Transmission Date: 20190417
  Serious: Yes (Life-Threatening, Other)
  Sender: FDA-Public Use
  Company Number: PHHY2018VE067931

PATIENT
  Age: 51 Year
  Sex: Female
  Weight: 53 kg

DRUGS (3)
  1. SANDOSTATIN LAR DEPOT [Suspect]
     Active Substance: OCTREOTIDE ACETATE
     Dosage: 40 MG, QMO
     Route: 030
     Dates: start: 2016
  2. SANDOSTATIN LAR DEPOT [Suspect]
     Active Substance: OCTREOTIDE ACETATE
     Indication: NEUROENDOCRINE TUMOUR
     Dosage: 2 DF, QMO (TWO DOSES (ALSO REPORTED AS TWO AMPOULES OF 20 MG), EVERY 28 DAYS)
     Route: 065
     Dates: end: 201712
  3. SANDOSTATIN LAR DEPOT [Suspect]
     Active Substance: OCTREOTIDE ACETATE
     Dosage: 30 MG, QMO
     Route: 030
     Dates: start: 201503

REACTIONS (26)
  - Drug dependence [Unknown]
  - Emotional disorder [Unknown]
  - Flushing [Not Recovered/Not Resolved]
  - Diarrhoea [Unknown]
  - Asphyxia [Unknown]
  - Depression [Unknown]
  - Anxiety [Unknown]
  - Gastrointestinal wall thickening [Unknown]
  - Malaise [Unknown]
  - Gastritis [Unknown]
  - Hypotension [Not Recovered/Not Resolved]
  - Tachycardia [Not Recovered/Not Resolved]
  - Choking [Not Recovered/Not Resolved]
  - Multiple injuries [Unknown]
  - Hypoaesthesia [Unknown]
  - Hepatic venous pressure gradient [Unknown]
  - Disease recurrence [Unknown]
  - Syncope [Unknown]
  - General physical health deterioration [Unknown]
  - Feeling abnormal [Unknown]
  - Panic attack [Unknown]
  - Hepatomegaly [Unknown]
  - Erythema [Not Recovered/Not Resolved]
  - Dizziness [Not Recovered/Not Resolved]
  - Fatigue [Not Recovered/Not Resolved]
  - Malignant neoplasm progression [Unknown]

NARRATIVE: CASE EVENT DATE: 20190211
